FAERS Safety Report 6003150-1 (Version None)
Quarter: 2008Q4

REPORT INFORMATION
  Report Type: 
  Country: None (occurrence: None)
  Receive Date: 20081216
  Receipt Date: 20081210
  Transmission Date: 20090506
  Serious: Yes (Other)
  Sender: FDA-Public Use
  Company Number: FR-JNJFOC-20081005729

PATIENT
  Sex: Male
  Weight: 80 kg

DRUGS (6)
  1. TOPIRAMATE [Suspect]
     Route: 048
     Dates: start: 20081023, end: 20081024
  2. TOPIRAMATE [Suspect]
     Indication: DRUG DISPENSING ERROR
     Route: 048
     Dates: start: 20081023, end: 20081024
  3. ZITHROMAX [Suspect]
     Indication: DRUG USE FOR UNKNOWN INDICATION
     Route: 048
  4. PAXELADINE [Concomitant]
     Indication: COUGH
     Route: 048
  5. ACETAMINOPHEN [Concomitant]
     Indication: PAIN
     Route: 048
  6. ACETAMINOPHEN [Concomitant]
     Indication: PYREXIA
     Route: 048

REACTIONS (3)
  - DRUG DISPENSING ERROR [None]
  - MEDICATION ERROR [None]
  - VERTIGO [None]
